FAERS Safety Report 9234400 (Version 1)
Quarter: 2013Q2

REPORT INFORMATION
  Report Type: Spontaneous
  Country: US (occurrence: US)
  Receive Date: 20130416
  Receipt Date: 20130416
  Transmission Date: 20140414
  Serious: Yes (Hospitalization)
  Sender: FDA-Public Use
  Company Number: US-GLAXOSMITHKLINE-A0725152A

PATIENT
  Age: 67 Year
  Sex: Male
  Weight: 100 kg

DRUGS (12)
  1. AVANDIA [Suspect]
     Indication: TYPE 2 DIABETES MELLITUS
     Dosage: 4MG PER DAY
     Route: 048
     Dates: start: 1999, end: 2007
  2. NITROGLYCERINE [Concomitant]
  3. LISINOPRIL [Concomitant]
  4. METFORMIN [Concomitant]
  5. NIACIN [Concomitant]
  6. FUROSEMIDE [Concomitant]
  7. ISOSORBIDE [Concomitant]
  8. OMEPRAZOLE [Concomitant]
  9. MECLIZINE [Concomitant]
  10. LANTUS [Concomitant]
  11. LABETALOL [Concomitant]
  12. HUMALOG [Concomitant]

REACTIONS (3)
  - Myocardial infarction [Not Recovered/Not Resolved]
  - Cerebrovascular accident [Unknown]
  - Heart injury [Unknown]
